FAERS Safety Report 5693262-4 (Version None)
Quarter: 2008Q2

REPORT INFORMATION
  Report Type: 
  Country: None (occurrence: None)
  Receive Date: 20080403
  Receipt Date: 20080326
  Transmission Date: 20081010
  Serious: Yes (Other)
  Sender: FDA-Public Use
  Company Number: PHBS2008ES03699

PATIENT
  Age: 60 Year
  Sex: Male

DRUGS (5)
  1. CYCLOSPORINE [Suspect]
     Indication: HEART TRANSPLANT
     Dosage: UNK, UNK
     Route: 065
  2. AZATHIOPRINE [Suspect]
     Indication: HEART TRANSPLANT
     Route: 065
  3. PREDNISONE TAB [Suspect]
     Indication: HEART TRANSPLANT
  4. RAPAMYCIN [Suspect]
     Indication: HEART TRANSPLANT
     Dosage: UNK, UNK
     Route: 065
  5. MYCOPHENOLATE MOFETIL [Suspect]
     Indication: HEART TRANSPLANT
     Dosage: UNK, UNK
     Route: 065

REACTIONS (13)
  - BIOPSY SKIN ABNORMAL [None]
  - DERMATITIS [None]
  - ECZEMA [None]
  - HEART TRANSPLANT REJECTION [None]
  - MYCOSIS FUNGOIDES [None]
  - MYCOSIS FUNGOIDES RECURRENT [None]
  - PRURIGO [None]
  - PRURITUS [None]
  - RASH [None]
  - RASH ERYTHEMATOUS [None]
  - SKIN LESION [None]
  - STAPHYLOCOCCAL INFECTION [None]
  - XERODERMA [None]
